FAERS Safety Report 8050224-X (Version None)
Quarter: 2012Q1

REPORT INFORMATION
  Report Type: 
  Country: None (occurrence: None)
  Receive Date: 20120111
  Receipt Date: 20110829
  Transmission Date: 20120608
  Serious: Yes (Life-Threatening)
  Sender: FDA-Public Use
  Company Number: 003-058

PATIENT
  Age: 20 Year
  Sex: Male

DRUGS (6)
  1. CEFEPIME [Concomitant]
  2. CROFAB [Suspect]
     Indication: SNAKE BITE
     Dosage: 4 VIALS X 1, 2 VIALS Q6H X 2
     Dates: start: 20110817
  3. DEMEROL [Concomitant]
  4. CROFAB [Suspect]
  5. LEVAQUIN [Concomitant]
  6. MORPHINE [Concomitant]

REACTIONS (2)
  - RENAL FAILURE ACUTE [None]
  - LOCALISED INFECTION [None]
